FAERS Safety Report 6255215-7 (Version None)
Quarter: 2009Q3

REPORT INFORMATION
  Report Type: 
  Country: None (occurrence: None)
  Receive Date: 20090702
  Receipt Date: 20090602
  Transmission Date: 20100115
  Serious: No
  Sender: FDA-Public Use
  Company Number: US-BAYER-200923569NA

PATIENT
  Age: 55 Year
  Sex: Female
  Weight: 113 kg

DRUGS (10)
  1. ULTRAVIST 370 [Suspect]
     Indication: COMPUTERISED TOMOGRAM ABDOMEN
     Dosage: TOTAL DAILY DOSE: 120 ML  UNIT DOSE: 500 ML
     Route: 042
     Dates: start: 20090602, end: 20090602
  2. ZESTORETIC [Concomitant]
  3. GLUCOVANCE [Concomitant]
  4. PANCREASE [Concomitant]
  5. WELCHOL [Concomitant]
  6. LASIX [Concomitant]
  7. KDUR [Concomitant]
  8. LANTUS [Concomitant]
  9. BENADRYL [Concomitant]
     Dosage: AS USED: 50 MG
     Route: 048
     Dates: start: 20090602, end: 20090602
  10. VITAMIN D [Concomitant]

REACTIONS (2)
  - PRURITUS [None]
  - SNEEZING [None]
